FAERS Safety Report 14614008 (Version 5)
Quarter: 2018Q2

REPORT INFORMATION
  Report Type: Spontaneous
  Country: GB (occurrence: GB)
  Receive Date: 20180308
  Receipt Date: 20180412
  Transmission Date: 20180711
  Serious: Yes (Hospitalization, Other)
  Sender: FDA-Public Use
  Company Number: GB-MYLANLABS-2018M1015143

PATIENT
  Age: 55 Year
  Sex: Female

DRUGS (1)
  1. CLOZARIL [Suspect]
     Active Substance: CLOZAPINE
     Indication: SCHIZOPHRENIA
     Dosage: UNK
     Route: 048
     Dates: start: 20080930, end: 20180323

REACTIONS (10)
  - Wrong technique in product usage process [Unknown]
  - Neuroendocrine tumour [Unknown]
  - Cardiac failure [Unknown]
  - Cardiomegaly [Unknown]
  - Ankle fracture [Unknown]
  - Intestinal haemorrhage [Unknown]
  - Constipation [Unknown]
  - Duodenostomy [Unknown]
  - Platelet count increased [Unknown]
  - Hip surgery [Unknown]

NARRATIVE: CASE EVENT DATE: 201803
